FAERS Safety Report 6425666-6 (Version None)
Quarter: 2009Q4

REPORT INFORMATION
  Report Type: 
  Country: None (occurrence: None)
  Receive Date: 20091103
  Receipt Date: 20091028
  Transmission Date: 20100525
  Serious: Yes (Other)
  Sender: FDA-Public Use
  Company Number: US-ABBOTT-09P-163-0605415-00

PATIENT
  Sex: Female

DRUGS (12)
  1. HUMIRA [Suspect]
     Indication: RHEUMATOID ARTHRITIS
     Dates: start: 20090901, end: 20091026
  2. RESTASIS [Concomitant]
     Indication: DRUG USE FOR UNKNOWN INDICATION
  3. LOMOTIL [Concomitant]
     Indication: DRUG USE FOR UNKNOWN INDICATION
  4. TYLENOL (CAPLET) [Concomitant]
     Indication: DRUG USE FOR UNKNOWN INDICATION
  5. ASPIRIN [Concomitant]
     Indication: DRUG USE FOR UNKNOWN INDICATION
  6. METHOTREXATE [Concomitant]
     Indication: DRUG USE FOR UNKNOWN INDICATION
  7. FOLIC ACID [Concomitant]
     Indication: DRUG USE FOR UNKNOWN INDICATION
  8. VICODIN [Concomitant]
     Indication: DRUG USE FOR UNKNOWN INDICATION
  9. CELEBREX [Concomitant]
     Indication: DRUG USE FOR UNKNOWN INDICATION
  10. AMRIX [Concomitant]
     Indication: DRUG USE FOR UNKNOWN INDICATION
  11. BENADRYL [Concomitant]
     Indication: DRUG USE FOR UNKNOWN INDICATION
  12. EPINEPHRINE [Concomitant]
     Indication: DRUG USE FOR UNKNOWN INDICATION

REACTIONS (3)
  - DYSPHAGIA [None]
  - PHARYNGEAL OEDEMA [None]
  - PRURITUS [None]
